FAERS Safety Report 16091983 (Version 1)
Quarter: 2019Q1

REPORT INFORMATION
  Report Type: Report from Study
  Country: AR (occurrence: AR)
  Receive Date: 20190319
  Receipt Date: 20190319
  Transmission Date: 20190418
  Serious: Yes (Hospitalization, Other)
  Sender: FDA-Public Use
  Company Number: AR-BRISTOL-MYERS SQUIBB COMPANY-BMS-2019-024796

PATIENT
  Age: 69 Year
  Sex: Male
  Weight: 108 kg

DRUGS (6)
  1. CISPLATIN. [Suspect]
     Active Substance: CISPLATIN
     Indication: NON-SMALL CELL LUNG CANCER
     Dosage: 150 MILLIGRAM
     Route: 042
     Dates: start: 20190123
  2. NIVOLUMAB [Suspect]
     Active Substance: NIVOLUMAB
     Indication: NON-SMALL CELL LUNG CANCER
     Dosage: 360 MILLIGRAM
     Route: 042
     Dates: start: 20190123
  3. DEXAMETHASONE. [Concomitant]
     Active Substance: DEXAMETHASONE
     Indication: PREMEDICATION
     Dosage: 8 MILLIGRAM
     Route: 065
     Dates: start: 20190306, end: 20190306
  4. PEMETREXED DISODIUM [Suspect]
     Active Substance: PEMETREXED DISODIUM
     Indication: NON-SMALL CELL LUNG CANCER
     Dosage: 1000 MILLIGRAM
     Route: 042
     Dates: start: 20190123
  5. MANNITOL. [Concomitant]
     Active Substance: MANNITOL
     Indication: PREMEDICATION
     Dosage: 500 MILLILITER
     Route: 065
     Dates: start: 20190306, end: 20190306
  6. ONDANSETRON [Concomitant]
     Active Substance: ONDANSETRON
     Indication: PREMEDICATION
     Dosage: 8 MILLIGRAM
     Route: 065
     Dates: start: 20190306, end: 20190306

REACTIONS (1)
  - Syncope [Recovered/Resolved]

NARRATIVE: CASE EVENT DATE: 20190311
